FAERS Safety Report 10038893 (Version 1)
Quarter: 2014Q1

REPORT INFORMATION
  Report Type: Spontaneous
  Country: CH (occurrence: CH)
  Receive Date: 20140326
  Receipt Date: 20140326
  Transmission Date: 20141002
  Serious: Yes (Other)
  Sender: FDA-Public Use
  Company Number: CH-VIIV HEALTHCARE LIMITED-B0979958A

PATIENT
  Age: 28 Year
  Sex: Male

DRUGS (6)
  1. COMBIVIR [Suspect]
     Indication: HIV CARRIER
     Dosage: 150MG ALTERNATE DAYS
     Route: 048
     Dates: start: 20021112, end: 20051107
  2. KIVEXA [Suspect]
     Indication: HIV CARRIER
     Dosage: 600MG PER DAY
     Route: 048
     Dates: start: 20061204
  3. KALETRA [Suspect]
     Indication: HIV CARRIER
     Dosage: 400MG EVERY 3 DAYS
     Route: 048
     Dates: start: 20060125, end: 20061204
  4. EFAVIRENZ [Suspect]
     Indication: PRODUCT USED FOR UNKNOWN INDICATION
     Dosage: 600MG PER DAY
     Route: 048
     Dates: start: 20021112, end: 20051107
  5. INTELENCE [Suspect]
     Indication: HIV CARRIER
     Dosage: 200MG ALTERNATE DAYS
     Route: 048
     Dates: start: 20090501
  6. HYDROCHLOROTHIAZIDE + LISINOPRIL [Concomitant]
     Dosage: 20MG PER DAY
     Route: 048
     Dates: start: 20050501

REACTIONS (3)
  - Blood creatine phosphokinase abnormal [Not Recovered/Not Resolved]
  - Hypertransaminasaemia [Not Recovered/Not Resolved]
  - Amylase abnormal [Recovered/Resolved]
